FAERS Safety Report 25907280 (Version 1)
Quarter: 2025Q4

REPORT INFORMATION
  Report Type: Spontaneous
  Country: CH (occurrence: CH)
  Receive Date: 20251010
  Receipt Date: 20251010
  Transmission Date: 20260118
  Serious: Yes (Other)
  Sender: ACCORD
  Company Number: CH-MLMSERVICE-20250922-PI655179-00218-1

PATIENT
  Age: 13 Year
  Sex: Female

DRUGS (29)
  1. METHOTREXATE [Suspect]
     Active Substance: METHOTREXATE
     Indication: Diffuse large B-cell lymphoma
     Dosage: DAY 1 R-COP REGIMEN
     Route: 037
  2. CYCLOPHOSPHAMIDE [Concomitant]
     Active Substance: CYCLOPHOSPHAMIDE
     Indication: Diffuse large B-cell lymphoma
     Dosage: FULL DOSE (300 MG/M2 DAY 1) ADMINISTERED
  3. VINCRISTINE [Concomitant]
     Active Substance: VINCRISTINE
     Indication: Diffuse large B-cell lymphoma
     Dosage: FULL DOSE (1.0 MG/M2 DAY 1); R-COP REGIMEN
  4. METHYLPREDNISOLONE [Concomitant]
     Active Substance: METHYLPREDNISOLONE
     Indication: Diffuse large B-cell lymphoma
     Dosage: DAY 1; R-COP REGIMEN
  5. DOXORUBICIN [Concomitant]
     Active Substance: DOXORUBICIN
     Indication: Diffuse large B-cell lymphoma
     Dosage: 75% DOSE REDUCTION (60 MG/M2 DAY 2); R-COPADM COURSES 1 AND 2
  6. CALCITRIOL [Concomitant]
     Active Substance: CALCITRIOL
  7. ERYTHROPOIETIN [Concomitant]
     Active Substance: ERYTHROPOIETIN
  8. CYTARABINE [Concomitant]
     Active Substance: CYTARABINE
     Indication: Diffuse large B-cell lymphoma
     Dosage: FULL DOSE (100 MG/M2 CONTINUOUS INFUSION OVER 24 HOURS ON DAYS 2 AND 6)
  9. LEUCOVORIN [Concomitant]
     Active Substance: LEUCOVORIN\LEUCOVORIN CALCIUM
     Dosage: FOLINIC ACID 15 MG/M2 6 HOURLY FROM H24
  10. PREDNISONE [Concomitant]
     Active Substance: PREDNISONE
     Indication: Diffuse large B-cell lymphoma
     Dosage: 60 MG/M2 DAY 1-7
  11. RITUXIMAB [Concomitant]
     Active Substance: RITUXIMAB
     Indication: Diffuse large B-cell lymphoma
     Dosage: FULL DOSE (375 MG/M. SQUARE DAY 6 (DAY-2 1STCOPADM))
  12. METHYLPREDNISOLONE [Concomitant]
     Active Substance: METHYLPREDNISOLONE
     Indication: Diffuse large B-cell lymphoma
     Dosage: 3 MG DAY 1 AND DAY 6; R-COPADM COURSES 1 +AMP; 2
  13. METHYLPREDNISOLONE [Concomitant]
     Active Substance: METHYLPREDNISOLONE
     Indication: Diffuse large B-cell lymphoma
     Dosage: FULL DOSE 3 MG DAY 7; R-CYM COURSES 1 +AMP; 2
  14. METHYLPREDNISOLONE [Concomitant]
     Active Substance: METHYLPREDNISOLONE
     Indication: Renal neoplasm
     Dosage: DAY 1; R-COP REGIMEN
  15. RITUXIMAB [Concomitant]
     Active Substance: RITUXIMAB
     Indication: Renal neoplasm
     Dosage: FULL DOSE (375 MG/METER SQUARE DAY 6  DAY-2 1STCOPADM))
  16. CYCLOPHOSPHAMIDE [Concomitant]
     Active Substance: CYCLOPHOSPHAMIDE
     Indication: Diffuse large B-cell lymphoma
     Dosage: 50% DOSE REDUCTION (250 MG M2/MEVERY
  17. CYCLOPHOSPHAMIDE [Concomitant]
     Active Substance: CYCLOPHOSPHAMIDE
     Indication: Renal neoplasm
     Dosage: FULL DOSE (300 MG/M2DAY 1) ADMINISTERED
  18. VINCRISTINE [Concomitant]
     Active Substance: VINCRISTINE
     Indication: Diffuse large B-cell lymphoma
     Dosage: FULL DOSE (2.0 MG/M, (CAPED TO 2.0 MG)
  19. VINCRISTINE [Concomitant]
     Active Substance: VINCRISTINE
     Indication: Renal neoplasm
     Dosage: FULL DOSE (1.0 MG/M2 DAY 1); R-COP REGIMEN
  20. DOXORUBICIN [Concomitant]
     Active Substance: DOXORUBICIN
     Indication: Renal neoplasm
     Dosage: 75% DOSE REDUCTION (60 MG/M2 DAY 2); R-COPADM COURSES 1 AND 2
  21. METHOTREXATE [Suspect]
     Active Substance: METHOTREXATE
     Indication: Diffuse large B-cell lymphoma
     Dosage: DAY 1, R-COPADM COURSES 1 +AMP; 2
     Route: 037
  22. METHOTREXATE [Suspect]
     Active Substance: METHOTREXATE
     Indication: Diffuse large B-cell lymphoma
     Dosage: DAY 2, R-CYM COURSES 1 +AMP; 2
     Route: 037
  23. METHOTREXATE [Suspect]
     Active Substance: METHOTREXATE
     Indication: Diffuse large B-cell lymphoma
     Dosage: 50% DOSE REDUCTION (3000 MG/M2 DAY 1)
     Route: 037
  24. METHOTREXATE [Suspect]
     Active Substance: METHOTREXATE
     Indication: Diffuse large B-cell lymphoma
     Dosage: 50% DOSE REDUCTION (3000 MG/M2 DAY 1)
     Route: 037
  25. METHOTREXATE [Suspect]
     Active Substance: METHOTREXATE
     Indication: Renal neoplasm
     Dosage: DAY 1 R-COP REGIMEN
     Route: 037
  26. PREDNISONE [Concomitant]
     Active Substance: PREDNISONE
     Indication: Diffuse large B-cell lymphoma
     Dosage: FULL DOSE (60 MG/M2 DAY 1-5); R-COPADM COURSES 1 +AMP; 2
  27. PREDNISONE [Concomitant]
     Active Substance: PREDNISONE
     Indication: Renal neoplasm
     Dosage: 60 MG/M2 DAY 1-7
  28. RITUXIMAB [Concomitant]
     Active Substance: RITUXIMAB
     Indication: Diffuse large B-cell lymphoma
     Dosage: 375 MG/M2 DAY-2 AND DAY 1
  29. RITUXIMAB [Concomitant]
     Active Substance: RITUXIMAB
     Indication: Diffuse large B-cell lymphoma
     Dosage: 375 MG/M2 DAY-2 AND DAY 1

REACTIONS (3)
  - Myelosuppression [Unknown]
  - Mucosal inflammation [Unknown]
  - Mucosal haemorrhage [Unknown]
